FAERS Safety Report 16644392 (Version 1)
Quarter: 2019Q3

REPORT INFORMATION
  Report Type: Spontaneous
  Country: FR (occurrence: FR)
  Receive Date: 20190729
  Receipt Date: 20190729
  Transmission Date: 20191004
  Serious: Yes (Hospitalization, Other)
  Sender: FDA-Public Use
  Company Number: FR-MYLANLABS-2019M1044141

PATIENT
  Age: 62 Year
  Sex: Female

DRUGS (2)
  1. CISPLATIN. [Suspect]
     Active Substance: CISPLATIN
     Indication: SMALL CELL LUNG CANCER
     Dosage: 134 MG, UNK
     Route: 065
     Dates: start: 20180924, end: 20181105
  2. ETOPOSIDE. [Suspect]
     Active Substance: ETOPOSIDE
     Indication: SMALL CELL LUNG CANCER
     Dosage: 180 MG, UNK
     Route: 065
     Dates: start: 20180924, end: 20181107

REACTIONS (2)
  - Anaemia [Recovered/Resolved]
  - Allergic transfusion reaction [Unknown]

NARRATIVE: CASE EVENT DATE: 20181116
